FAERS Safety Report 15543890 (Version 1)
Quarter: 2018Q4

REPORT INFORMATION
  Report Type: Report from Study
  Country: IT (occurrence: IT)
  Receive Date: 20181023
  Receipt Date: 20181023
  Transmission Date: 20190205
  Serious: Yes (Other)
  Sender: FDA-Public Use
  Company Number: IT-TEVA-2018-IT-967947

PATIENT
  Age: 73 Year
  Sex: Male

DRUGS (5)
  1. PACLITAXEL. [Suspect]
     Active Substance: PACLITAXEL
     Indication: BLADDER CANCER
     Route: 042
     Dates: start: 20180918, end: 20181003
  2. CLEXANE [Concomitant]
     Active Substance: ENOXAPARIN SODIUM
  3. SOLDESAM [Concomitant]
     Active Substance: DEXAMETHASONE
  4. FENTANYL. [Concomitant]
     Active Substance: FENTANYL
  5. MOVICOL [Concomitant]
     Active Substance: POLYETHYLENE GLYCOL 3350\POTASSIUM CHLORIDE\SODIUM BICARBONATE\SODIUM CHLORIDE

REACTIONS (5)
  - Thrombocytopenia [Unknown]
  - Blood iron decreased [Unknown]
  - Anaemia [Unknown]
  - Asthenia [Unknown]
  - Pallor [Unknown]

NARRATIVE: CASE EVENT DATE: 20181002
